FAERS Safety Report 6611971-7 (Version None)
Quarter: 2010Q1

REPORT INFORMATION
  Report Type: 
  Country: None (occurrence: None)
  Receive Date: 20100302
  Receipt Date: 20100302
  Transmission Date: 20100710
  Serious: Yes (Hospitalization)
  Sender: FDA-Public Use
  Company Number: None

PATIENT
  Sex: Male
  Weight: 91.63 kg

DRUGS (2)
  1. CARBOPLATIN [Suspect]
     Dosage: 719 MG
  2. TAXOL [Suspect]
     Dosage: 428 MG

REACTIONS (8)
  - ASTHENIA [None]
  - ATELECTASIS [None]
  - DECREASED APPETITE [None]
  - DEHYDRATION [None]
  - EPISTAXIS [None]
  - HAEMATOCHEZIA [None]
  - HAEMOPTYSIS [None]
  - SYNCOPE [None]
